FAERS Safety Report 7113558-9 (Version None)
Quarter: 2010Q4

REPORT INFORMATION
  Report Type: 
  Country: None (occurrence: None)
  Receive Date: 20101119
  Receipt Date: 20101115
  Transmission Date: 20110411
  Serious: Yes (Death, Other)
  Sender: FDA-Public Use
  Company Number: DE-ROCHE-703536

PATIENT
  Sex: Male
  Weight: 67 kg

DRUGS (3)
  1. PEGINTERFERON ALFA-2A [Suspect]
     Route: 058
     Dates: start: 20100305, end: 20100423
  2. RIBAVIRIN [Suspect]
     Route: 048
     Dates: start: 20100305, end: 20100502
  3. IBUPROFEN [Concomitant]
     Route: 048
     Dates: start: 20100305, end: 20100430

REACTIONS (6)
  - ARTERITIS [None]
  - CARDIAC FAILURE [None]
  - HEPATIC FAILURE [None]
  - MYALGIA [None]
  - PULMONARY HYPERTENSION [None]
  - THROMBOCYTOPENIA [None]
